FAERS Safety Report 10398295 (Version 2)
Quarter: 2015Q4

REPORT INFORMATION
  Report Type: Report from Study
  Country: US (occurrence: US)
  Receive Date: 20140821
  Receipt Date: 20151022
  Transmission Date: 20160304
  Serious: Yes (Hospitalization, Other)
  Sender: FDA-Public Use
  Company Number: US-SA-2014SA109390

PATIENT
  Age: 51 Year
  Sex: Female

DRUGS (2)
  1. FABRAZYME [Suspect]
     Active Substance: AGALSIDASE BETA
     Indication: FABRY^S DISEASE
     Route: 042
     Dates: start: 20050108, end: 20121213
  2. FABRAZYME [Suspect]
     Active Substance: AGALSIDASE BETA
     Indication: FABRY^S DISEASE
     Route: 042
     Dates: end: 20140409

REACTIONS (4)
  - Transient ischaemic attack [Not Recovered/Not Resolved]
  - Congenital cystic kidney disease [Unknown]
  - Disorientation [Unknown]
  - Memory impairment [Unknown]
